FAERS Safety Report 5943700-4 (Version None)
Quarter: 2008Q4

REPORT INFORMATION
  Report Type: 
  Country: None (occurrence: None)
  Receive Date: 20081106
  Receipt Date: 20081030
  Transmission Date: 20090506
  Serious: Yes (Other)
  Sender: FDA-Public Use
  Company Number: GB-PFIZER INC-2008088542

PATIENT
  Age: 2 Year
  Sex: Female

DRUGS (3)
  1. METHOTREXATE [Suspect]
     Route: 048
     Dates: start: 20060526
  2. DICLOFENAC [Concomitant]
     Route: 048
  3. FOLIC ACID [Concomitant]
     Dosage: DAILY DOSE:1MG
     Route: 048

REACTIONS (8)
  - ARTHRALGIA [None]
  - BALANCE DISORDER [None]
  - DECREASED ACTIVITY [None]
  - ECZEMA [None]
  - FALL [None]
  - JUVENILE ARTHRITIS [None]
  - MOUTH ULCERATION [None]
  - PAIN IN EXTREMITY [None]
